FAERS Safety Report 4366129-1 (Version None)
Quarter: 2004Q2

REPORT INFORMATION
  Report Type: 
  Country: None (occurrence: None)
  Receive Date: 20040524
  Receipt Date: 20040408
  Transmission Date: 20050107
  Serious: Yes (Disabling)
  Sender: FDA-Public Use
  Company Number: S04-FRA-02223-01

PATIENT
  Age: 56 Year
  Sex: Male

DRUGS (2)
  1. SEROPLEX (ESCITALOPRAM) [Suspect]
     Indication: DEPRESSION
     Dosage: 10 MG QD PO
     Route: 048
     Dates: start: 20040324, end: 20040402
  2. PRETERAX [Concomitant]

REACTIONS (1)
  - DYSPNOEA EXERTIONAL [None]
